FAERS Safety Report 4679620-5 (Version None)
Quarter: 2005Q2

REPORT INFORMATION
  Report Type: 
  Country: None (occurrence: None)
  Receive Date: 20050531
  Receipt Date: 20050517
  Transmission Date: 20051028
  Serious: Yes (Other)
  Sender: FDA-Public Use
  Company Number: B0378993A

PATIENT
  Age: 60 Year
  Sex: Male
  Weight: 69.8539 kg

DRUGS (6)
  1. EPIVIR-HBV [Suspect]
     Indication: CHRONIC HEPATITIS
     Dosage: 100 MG / PER DAY / ORAL
     Route: 048
     Dates: start: 20050224
  2. FLUVASTATIN SODIUM TABLET (FLUVASTATIN SODIUM) [Suspect]
     Indication: HYPERLIPIDAEMIA
     Dosage: 20 MG / PER DAY / ORAL
     Route: 048
     Dates: start: 20000727
  3. PROHEPARUM [Concomitant]
  4. REPTOR [Concomitant]
  5. DAISAIKOTO [Concomitant]
  6. AMLODIPINE BESYLATE [Concomitant]

REACTIONS (9)
  - ALANINE AMINOTRANSFERASE INCREASED [None]
  - ANAEMIA [None]
  - ASPARTATE AMINOTRANSFERASE DECREASED [None]
  - DECREASED APPETITE [None]
  - DIARRHOEA [None]
  - GAMMA-GLUTAMYLTRANSFERASE INCREASED [None]
  - HYPOAESTHESIA [None]
  - NAUSEA [None]
  - RHABDOMYOLYSIS [None]
